FAERS Safety Report 19031224 (Version 1)
Quarter: 2021Q1

REPORT INFORMATION
  Report Type: Spontaneous
  Country: US (occurrence: US)
  Receive Date: 20210319
  Receipt Date: 20210319
  Transmission Date: 20210420
  Serious: Yes (Other)
  Sender: FDA-Public Use
  Company Number: US-BIOVITRUM-2021US2666

PATIENT
  Sex: Male
  Weight: 8 kg

DRUGS (4)
  1. SYNAGIS [Suspect]
     Active Substance: PALIVIZUMAB
     Indication: HYPOXIC-ISCHAEMIC ENCEPHALOPATHY
  2. SYNAGIS [Suspect]
     Active Substance: PALIVIZUMAB
     Indication: PREMATURE BABY
     Route: 030
  3. SYNAGIS [Suspect]
     Active Substance: PALIVIZUMAB
     Indication: INFANTILE SPASMS
  4. EPINEPHRINE HCL [Concomitant]
     Active Substance: EPINEPHRINE

REACTIONS (1)
  - Device related infection [Unknown]
